FAERS Safety Report 5405506-4 (Version None)
Quarter: 2007Q3

REPORT INFORMATION
  Report Type: 
  Country: None (occurrence: None)
  Receive Date: 20070803
  Receipt Date: 20070724
  Transmission Date: 20080115
  Serious: Yes (Other)
  Sender: FDA-Public Use
  Company Number: FR-PFIZER INC-2007061205

PATIENT
  Age: 30 Year
  Sex: Female

DRUGS (2)
  1. CYTOTEC [Suspect]
     Indication: ABORTION
     Dosage: TEXT:4 TABLETS
     Route: 048
     Dates: start: 20070531, end: 20070531
  2. MIFEPRISTONE [Suspect]
     Indication: ABORTION
     Dates: start: 20070529, end: 20070529

REACTIONS (2)
  - ANTEPARTUM HAEMORRHAGE [None]
  - DRUG INEFFECTIVE FOR UNAPPROVED INDICATION [None]
